FAERS Safety Report 6429327-9 (Version None)
Quarter: 2009Q4

REPORT INFORMATION
  Report Type: 
  Country: None (occurrence: None)
  Receive Date: 20091030
  Receipt Date: 20091019
  Transmission Date: 20100525
  Serious: Yes (Other)
  Sender: FDA-Public Use
  Company Number: GXBR2009US01974

PATIENT
  Sex: Female

DRUGS (1)
  1. THIORIDAZINE HCL [Suspect]
     Dosage: MATERNAL DOSE: TRANSPLACENTAL
     Route: 064

REACTIONS (2)
  - LEARNING DISABILITY [None]
  - MATERNAL DRUGS AFFECTING FOETUS [None]
